FAERS Safety Report 6787724-6 (Version None)
Quarter: 2010Q2

REPORT INFORMATION
  Report Type: 
  Country: None (occurrence: None)
  Receive Date: 20100623
  Receipt Date: 20070710
  Transmission Date: 20101027
  Serious: No
  Sender: FDA-Public Use
  Company Number: US-PFIZER INC-2007057009

PATIENT
  Age: 59 Year
  Sex: Female
  Weight: 66 kg

DRUGS (1)
  1. GEODON [Suspect]
     Route: 030
     Dates: start: 20070710

REACTIONS (2)
  - DRUG ADMINISTRATION ERROR [None]
  - MALAISE [None]
